FAERS Safety Report 11212336 (Version 2)
Quarter: 2015Q3

REPORT INFORMATION
  Report Type: Spontaneous
  Country: US (occurrence: US)
  Receive Date: 20150623
  Receipt Date: 20150722
  Transmission Date: 20151125
  Serious: No
  Sender: FDA-Public Use
  Company Number: US-PFIZER INC-2015206173

PATIENT
  Sex: Female

DRUGS (2)
  1. INLYTA [Suspect]
     Active Substance: AXITINIB
     Dosage: 4 MG, 2X/DAY (4 TABLETS OF 1MG TWICE DAILY)
  2. INLYTA [Suspect]
     Active Substance: AXITINIB
     Indication: NEOPLASM MALIGNANT
     Dosage: 7MG (4 TABLETS OF 1MG IN THE MORNING AND 3 TABLETS IN THE EVENING)

REACTIONS (2)
  - Disease progression [Unknown]
  - Neoplasm malignant [Unknown]
